FAERS Safety Report 15129697 (Version 1)
Quarter: 2018Q3

REPORT INFORMATION
  Report Type: Spontaneous
  Country: US (occurrence: US)
  Receive Date: 20180711
  Receipt Date: 20180711
  Transmission Date: 20181010
  Serious: No
  Sender: FDA-Public Use
  Company Number: US-SA-2018SA178176

PATIENT
  Age: 63 Year
  Sex: Male

DRUGS (1)
  1. AMBIEN CR [Suspect]
     Active Substance: ZOLPIDEM TARTRATE
     Indication: PRODUCT USED FOR UNKNOWN INDICATION
     Dosage: 12.5 MG, HS
     Route: 065

REACTIONS (3)
  - Feeling jittery [Unknown]
  - Drug ineffective [Unknown]
  - Insomnia [Unknown]
